FAERS Safety Report 6250220-9 (Version None)
Quarter: 2009Q2

REPORT INFORMATION
  Report Type: 
  Country: None (occurrence: None)
  Receive Date: 20090630
  Receipt Date: 20090617
  Transmission Date: 20091009
  Serious: Yes (Other)
  Sender: FDA-Public Use
  Company Number: IT-RANBAXY-2009RR-25000

PATIENT
  Sex: Female

DRUGS (2)
  1. PARACETAMOL [Suspect]
  2. NIMESULIDE [Suspect]

REACTIONS (1)
  - SWELLING FACE [None]
